FAERS Safety Report 11801924 (Version 1)
Quarter: 2015Q4

REPORT INFORMATION
  Report Type: Spontaneous
  Country: US (occurrence: None)
  Receive Date: 20151203
  Receipt Date: 20151203
  Transmission Date: 20160305
  Serious: Yes (Life-Threatening, Hospitalization, Other)
  Sender: FDA-Public Use
  Company Number: None

PATIENT
  Age: 33 Year
  Sex: Female
  Weight: 70.31 kg

DRUGS (13)
  1. BENADRYL [Concomitant]
     Active Substance: DIPHENHYDRAMINE HYDROCHLORIDE
  2. EFFEXOR [Suspect]
     Active Substance: VENLAFAXINE HYDROCHLORIDE
     Indication: DEPRESSION
     Route: 048
  3. AMOXICILLIN. [Concomitant]
     Active Substance: AMOXICILLIN
  4. SEROQUEL [Suspect]
     Active Substance: QUETIAPINE FUMARATE
     Indication: DEPRESSION
     Route: 048
  5. EFFEXOR [Suspect]
     Active Substance: VENLAFAXINE HYDROCHLORIDE
     Indication: BORDERLINE PERSONALITY DISORDER
     Route: 048
  6. EFFEXOR [Suspect]
     Active Substance: VENLAFAXINE HYDROCHLORIDE
     Indication: COMPLETED SUICIDE
     Route: 048
  7. AMINO ACID SUPPLEMENTS [Concomitant]
  8. SEROQUEL [Suspect]
     Active Substance: QUETIAPINE FUMARATE
     Indication: BORDERLINE PERSONALITY DISORDER
     Route: 048
  9. VITAMIN [Concomitant]
     Active Substance: VITAMINS
  10. AVOCARE/TREVO JUICE [Concomitant]
  11. OMEPRAZOLE/POTASSIUM CL [Concomitant]
  12. FUROSEMIDE. [Concomitant]
     Active Substance: FUROSEMIDE
  13. ACETAMINOPHEN-COD [Concomitant]
     Active Substance: ACETAMINOPHEN\CODEINE PHOSPHATE

REACTIONS (4)
  - Emotional disorder [None]
  - Suicidal ideation [None]
  - Feeling abnormal [None]
  - Depression [None]

NARRATIVE: CASE EVENT DATE: 20151201
